FAERS Safety Report 14022107 (Version 5)
Quarter: 2019Q2

REPORT INFORMATION
  Report Type: Spontaneous
  Country: US (occurrence: US)
  Receive Date: 20170928
  Receipt Date: 20190404
  Transmission Date: 20190711
  Serious: Yes (Hospitalization)
  Sender: FDA-Public Use
  Company Number: US-ACTELION-A-NJ2017-160129

PATIENT
  Sex: Female
  Weight: 57.14 kg

DRUGS (4)
  1. UPTRAVI [Suspect]
     Active Substance: SELEXIPAG
     Indication: PULMONARY ARTERIAL HYPERTENSION
     Dosage: 1000 MCG, BID
     Route: 048
  2. ADEMPAS [Concomitant]
     Active Substance: RIOCIGUAT
  3. WARFARIN [Concomitant]
     Active Substance: WARFARIN
  4. TACROLIMUS. [Concomitant]
     Active Substance: TACROLIMUS

REACTIONS (14)
  - Unevaluable event [Unknown]
  - Asthenia [Recovering/Resolving]
  - Oxygen saturation decreased [Unknown]
  - Lung infection [Recovered/Resolved]
  - Atrial fibrillation [Recovering/Resolving]
  - Hypotension [Unknown]
  - Dyspnoea [Recovering/Resolving]
  - Dizziness [Unknown]
  - Fluid overload [Recovering/Resolving]
  - Muscle spasms [Recovering/Resolving]
  - Influenza [Unknown]
  - Dehydration [Recovering/Resolving]
  - Lung disorder [Recovered/Resolved]
  - Hospitalisation [Unknown]
